FAERS Safety Report 21383943 (Version 3)
Quarter: 2022Q4

REPORT INFORMATION
  Report Type: Report from Study
  Country: CA (occurrence: CA)
  Receive Date: 20220928
  Receipt Date: 20221122
  Transmission Date: 20230113
  Serious: Yes (Other)
  Sender: FDA-Public Use
  Company Number: CA-JNJFOC-20220949429

PATIENT
  Age: 17 Year
  Sex: Male

DRUGS (1)
  1. REMICADE [Suspect]
     Active Substance: INFLIXIMAB
     Indication: Crohn^s disease
     Dosage: LAST DOSE WAS ON 13-JUL-2022
     Route: 042
     Dates: start: 20180507

REACTIONS (8)
  - Seizure [Recovering/Resolving]
  - Feeling abnormal [Unknown]
  - Obsessive-compulsive disorder [Unknown]
  - Abnormal behaviour [Unknown]
  - Anxiety [Unknown]
  - Hypersomnia [Unknown]
  - Fatigue [Not Recovered/Not Resolved]
  - Off label use [Unknown]

NARRATIVE: CASE EVENT DATE: 20180507
